FAERS Safety Report 10283726 (Version 1)
Quarter: 2014Q3

REPORT INFORMATION
  Report Type: Spontaneous
  Country: GB (occurrence: None)
  Receive Date: 20140702
  Receipt Date: 20140702
  Transmission Date: 20150326
  Serious: Yes (Other)
  Sender: FDA-Public Use
  Company Number: AUR-APL-2014-06837

PATIENT
  Age: 60 Year
  Sex: Male
  Weight: 91 kg

DRUGS (12)
  1. BEZAFIBRATE (BEZAFIBRATE) [Concomitant]
  2. NOVORAPID [Concomitant]
     Active Substance: INSULIN ASPART
  3. DABIGATRAN (DABIGATRAN) (DABIGA TRAN) [Suspect]
     Active Substance: DABIGATRAN
     Indication: PRODUCT USED FOR UNKNOWN INDICATION
  4. SALBUTAMOL (SALBUTAMOL) [Concomitant]
     Active Substance: ALBUTEROL
  5. DAPAGLIFLOZIN [Suspect]
     Active Substance: DAPAGLIFLOZIN
     Indication: PRODUCT USED FOR UNKNOWN INDICATION
  6. LANTUS [Concomitant]
     Active Substance: INSULIN GLARGINE
  7. TRAMADOL (TRAMADOL) [Suspect]
     Active Substance: TRAMADOL
     Indication: PAIN
     Route: 048
     Dates: start: 2000, end: 20140606
  8. RAMIPRIL (RAMIPRIL) [Concomitant]
     Active Substance: RAMIPRIL
  9. SALMETEROL (SALMETEROL) [Concomitant]
  10. TIOTROPIUM (TIOTROPIUM) [Concomitant]
  11. DOXAZOSIN [Concomitant]
     Active Substance: DOXAZOSIN\DOXAZOSIN MESYLATE
  12. OMEPRAZOLE (OMEPRAZOLE) [Concomitant]
     Active Substance: OMEPRAZOLE

REACTIONS (4)
  - Blister [None]
  - Self-injurious ideation [None]
  - Drug interaction [None]
  - Depressed mood [None]

NARRATIVE: CASE EVENT DATE: 20140501
